FAERS Safety Report 9210465 (Version 4)
Quarter: 2013Q2

REPORT INFORMATION
  Report Type: Spontaneous
  Country: US (occurrence: US)
  Receive Date: 20130404
  Receipt Date: 20130603
  Transmission Date: 20140414
  Serious: Yes (Other)
  Sender: FDA-Public Use
  Company Number: US-PFIZER INC-2013103093

PATIENT
  Age: 66 Year
  Sex: Male
  Weight: 72 kg

DRUGS (3)
  1. DEPO-TESTOSTERONE [Suspect]
     Indication: BLOOD TESTOSTERONE DECREASED
     Dosage: 200 MG/ML, MONTHLY
     Dates: start: 201209, end: 201303
  2. IBUPROFEN [Suspect]
     Dosage: 800 MG, AS NEEDED (ALMOST EVERY FOUR HOURS)
     Dates: start: 20130209, end: 201302
  3. DOXAZOSIN MESILATE [Suspect]
     Indication: URINARY RETENTION
     Dosage: 2 MG, 1X/DAY
     Dates: start: 2013

REACTIONS (17)
  - Bile duct adenocarcinoma [Unknown]
  - Bile duct stenosis [Unknown]
  - Urinary retention [Unknown]
  - Hepatic failure [Unknown]
  - Jaundice [Unknown]
  - Hepatic lesion [Unknown]
  - Ocular icterus [Unknown]
  - Aspartate aminotransferase increased [Unknown]
  - Alanine aminotransferase increased [Unknown]
  - Dyspnoea [Unknown]
  - Blood cholesterol increased [Unknown]
  - Blood triglycerides increased [Unknown]
  - Fatigue [Unknown]
  - Drug ineffective [Unknown]
  - Cough [Unknown]
  - Rash [Unknown]
  - Skin exfoliation [Unknown]
